FAERS Safety Report 4612268-7 (Version None)
Quarter: 2005Q2

REPORT INFORMATION
  Report Type: 
  Country: None (occurrence: None)
  Receive Date: 20050308
  Receipt Date: 20041228
  Transmission Date: 20051028
  Serious: Yes (Other)
  Sender: FDA-Public Use
  Company Number: 2004UW23774

PATIENT
  Age: 63 Year
  Sex: Female
  Weight: 93.8946 kg

DRUGS (4)
  1. CRESTOR [Suspect]
     Dosage: 10 MG DAILY PO
     Route: 048
  2. LIPITOR [Concomitant]
  3. PROTONIX [Concomitant]
  4. VERELAN [Concomitant]

REACTIONS (2)
  - CRYING [None]
  - DEPRESSION [None]
